FAERS Safety Report 4900125-8 (Version None)
Quarter: 2006Q1

REPORT INFORMATION
  Report Type: 
  Country: None (occurrence: None)
  Receive Date: 20060203
  Receipt Date: 20060130
  Transmission Date: 20060701
  Serious: Yes (Hospitalization)
  Sender: FDA-Public Use
  Company Number: FR-AVENTIS-200610342FR

PATIENT
  Age: 63 Year
  Sex: Male

DRUGS (12)
  1. TAXOTERE [Suspect]
     Indication: LUNG CANCER METASTATIC
     Route: 042
     Dates: start: 20050607
  2. SOPHIDONE LP [Suspect]
     Route: 048
     Dates: start: 20051121
  3. ZOMETA [Suspect]
     Route: 042
     Dates: start: 20050530
  4. LAROXYL [Suspect]
     Route: 048
     Dates: start: 20051125
  5. XATRAL [Suspect]
     Route: 048
     Dates: start: 20051117
  6. NEURONTIN [Concomitant]
  7. CORTANCYL [Concomitant]
  8. KARDEGIC [Concomitant]
  9. ACETAMINOPHEN [Concomitant]
  10. FORLAX [Concomitant]
  11. NEXIUM [Concomitant]
  12. MORPHINE [Concomitant]

REACTIONS (3)
  - ARTHRALGIA [None]
  - BONE PAIN [None]
  - OSTEONECROSIS [None]
